FAERS Safety Report 9129037 (Version 2)
Quarter: 2013Q1

REPORT INFORMATION
  Report Type: Spontaneous
  Country: AU (occurrence: AU)
  Receive Date: 20130125
  Receipt Date: 20130301
  Transmission Date: 20140127
  Serious: Yes (Life-Threatening)
  Sender: FDA-Public Use
  Company Number: AU-ASTRAZENECA-2013SE04608

PATIENT
  Age: 15 Year
  Sex: Female

DRUGS (10)
  1. PROPOFOL [Suspect]
     Route: 042
     Dates: start: 20121218
  2. FENTANYL [Suspect]
     Dates: start: 20121218
  3. METARAMINOL TARTRATE [Suspect]
     Dates: start: 20121218
  4. MIDAZOLAM [Suspect]
     Dates: start: 20121218
  5. ONDANSETRON HYDROCHLORIDE [Suspect]
     Dates: start: 20121218
  6. SEVOFLURANE [Suspect]
  7. BETADINE [Suspect]
  8. DEXAMETHASONE [Suspect]
     Dates: start: 20121218
  9. HYDROGEN PEROXIDE [Suspect]
  10. KALTOSTAT [Suspect]

REACTIONS (6)
  - Syncope [Recovered/Resolved]
  - Stridor [Recovered/Resolved]
  - Dyspnoea [Recovered/Resolved]
  - Respiratory distress [Recovered/Resolved]
  - Angioedema [Recovered/Resolved]
  - Anaphylactic reaction [Recovered/Resolved]
